FAERS Safety Report 18180233 (Version 1)
Quarter: 2020Q3

REPORT INFORMATION
  Report Type: Spontaneous
  Country: PK (occurrence: PK)
  Receive Date: 20200821
  Receipt Date: 20200821
  Transmission Date: 20201103
  Serious: No
  Sender: FDA-Public Use
  Company Number: None

PATIENT
  Age: 20 Year
  Sex: Female
  Weight: 46 kg

DRUGS (2)
  1. ALTERCAST [Concomitant]
  2. ALTERCAST MONTELUKAST [Suspect]
     Active Substance: MONTELUKAST SODIUM

REACTIONS (5)
  - Dizziness [None]
  - Fatigue [None]
  - Abdominal discomfort [None]
  - Pollakiuria [None]
  - Chromaturia [None]

NARRATIVE: CASE EVENT DATE: 20200819
